FAERS Safety Report 11945166 (Version 1)
Quarter: 2016Q1

REPORT INFORMATION
  Report Type: Report from Study
  Country: US (occurrence: US)
  Receive Date: 20160125
  Receipt Date: 20160125
  Transmission Date: 20160526
  Serious: Yes (Death, Hospitalization)
  Sender: FDA-Public Use
  Company Number: US-JNJFOC-20160116431

PATIENT
  Age: 85 Year
  Sex: Male
  Weight: 43 kg

DRUGS (16)
  1. IMBRUVICA [Suspect]
     Active Substance: IBRUTINIB
     Indication: CHRONIC LYMPHOCYTIC LEUKAEMIA
     Dosage: 420 MG QD
     Route: 048
     Dates: start: 20150328, end: 20151015
  2. PROMETHAZINE [Concomitant]
     Active Substance: PROMETHAZINE\PROMETHAZINE HYDROCHLORIDE
     Indication: NAUSEA
     Dosage: 12.5 MG, PRN EVERY 4 HOURS
  3. PRILOSEC [Concomitant]
     Active Substance: OMEPRAZOLE MAGNESIUM
     Dosage: 20 MG, Q AM
  4. REMERON [Concomitant]
     Active Substance: MIRTAZAPINE
     Dosage: 15 MG, Q PM IF DEEMED NECESSARY BY FACILITY^S MEDICAL DIRECTOR
  5. KEPPRA [Concomitant]
     Active Substance: LEVETIRACETAM
  6. PREDNISONE. [Concomitant]
     Active Substance: PREDNISONE
  7. CYANOCOBALAMINE [Concomitant]
     Active Substance: CYANOCOBALAMIN
  8. POTASSIUM CHLORIDE. [Concomitant]
     Active Substance: POTASSIUM CHLORIDE
  9. AMBIEN [Concomitant]
     Active Substance: ZOLPIDEM TARTRATE
     Dosage: 10 MG, PRN AT BEDTIME
  10. ATORVASTATIN [Concomitant]
     Active Substance: ATORVASTATIN
  11. WARFARIN [Concomitant]
     Active Substance: WARFARIN
  12. NORCO [Concomitant]
     Active Substance: ACETAMINOPHEN\HYDROCODONE BITARTRATE
     Indication: PAIN
     Dosage: 5/325 MG, PRN 1-2 TABLETS EVERY 4 HOURS
  13. MEGACE [Concomitant]
     Active Substance: MEGESTROL ACETATE
  14. REMERON [Concomitant]
     Active Substance: MIRTAZAPINE
     Dosage: 7.5 MG Q PM FOR 1 WEEK
  15. IBUPROFEN. [Concomitant]
     Active Substance: IBUPROFEN
  16. ZOFRAN [Concomitant]
     Active Substance: ONDANSETRON HYDROCHLORIDE
     Indication: NAUSEA
     Dosage: 8 MG, PRN EVERY 8 HOURS

REACTIONS (6)
  - Depression [Unknown]
  - Pneumonia [Unknown]
  - Failure to thrive [Unknown]
  - Cachexia [Unknown]
  - Platelet count decreased [Unknown]
  - Death [Fatal]

NARRATIVE: CASE EVENT DATE: 2015
